FAERS Safety Report 7323106-6 (Version None)
Quarter: 2011Q1

REPORT INFORMATION
  Report Type: 
  Country: None (occurrence: None)
  Receive Date: 20110301
  Receipt Date: 20100908
  Transmission Date: 20110831
  Serious: Yes (Other)
  Sender: FDA-Public Use
  Company Number: US-BAYER-200943265NA

PATIENT
  Sex: Female
  Weight: 93.878 kg

DRUGS (6)
  1. OCELLA [Suspect]
     Indication: ORAL CONTRACEPTION
     Dosage: UNK
     Dates: start: 20080701, end: 20091001
  2. ROXICET [Concomitant]
     Dosage: UNK
  3. METRONIDAZOLE [Concomitant]
     Dosage: 500 MG, UNK
  4. CLINDESSE [Concomitant]
     Dosage: 2 %, UNK
     Route: 067
  5. PROMETHAZINE [Concomitant]
     Dosage: 25 MG, UNK
  6. YASMIN [Suspect]
     Indication: ORAL CONTRACEPTION
     Dosage: 1 DF (DAILY DOSE), QD, ORAL
     Route: 048
     Dates: start: 20050501, end: 20080601

REACTIONS (6)
  - CHOLECYSTITIS CHRONIC [None]
  - VOMITING [None]
  - NAUSEA [None]
  - CHOLELITHIASIS [None]
  - PAIN [None]
  - ABDOMINAL PAIN UPPER [None]
